FAERS Safety Report 7619995-8 (Version None)
Quarter: 2011Q3

REPORT INFORMATION
  Report Type: 
  Country: None (occurrence: None)
  Receive Date: 20110719
  Receipt Date: 20110704
  Transmission Date: 20111222
  Serious: Yes (Other)
  Sender: FDA-Public Use
  Company Number: US-SANOFI-AVENTIS-2011SA033443

PATIENT
  Sex: Male

DRUGS (4)
  1. SOLOSTAR [Suspect]
     Indication: PRODUCT USED FOR UNKNOWN INDICATION
     Dates: start: 20110501, end: 20110501
  2. SOLOSTAR [Suspect]
     Dates: start: 20110501, end: 20110522
  3. LANTUS [Suspect]
     Route: 051
     Dates: start: 20110501, end: 20110501
  4. LANTUS [Suspect]
     Indication: PRODUCT USED FOR UNKNOWN INDICATION
     Route: 051
     Dates: start: 20110501, end: 20110522

REACTIONS (2)
  - DEVICE MALFUNCTION [None]
  - PRODUCT QUALITY ISSUE [None]
